FAERS Safety Report 23739478 (Version 1)
Quarter: 2024Q2

REPORT INFORMATION
  Report Type: Spontaneous
  Country: FR (occurrence: FR)
  Receive Date: 20240413
  Receipt Date: 20240413
  Transmission Date: 20240716
  Serious: Yes (Life-Threatening, Other)
  Sender: FDA-Public Use
  Company Number: FR-INCYTE CORPORATION-2024IN003809

PATIENT
  Age: 57 Year
  Sex: Male

DRUGS (1)
  1. ICLUSIG [Suspect]
     Active Substance: PONATINIB
     Indication: Acute myeloid leukaemia
     Dosage: 45 MILLIGRAM
     Route: 065
     Dates: start: 202209

REACTIONS (3)
  - Myocardial infarction [Unknown]
  - Hepatitis [Unknown]
  - Pancreatitis [Unknown]
